FAERS Safety Report 15190598 (Version 1)
Quarter: 2018Q3

REPORT INFORMATION
  Report Type: Spontaneous
  Country: CH (occurrence: CH)
  Receive Date: 20180724
  Receipt Date: 20180724
  Transmission Date: 20181010
  Serious: Yes (Other)
  Sender: FDA-Public Use
  Company Number: CH-SA-2018SA195836

PATIENT
  Age: 78 Year
  Sex: Male

DRUGS (27)
  1. AZACITIDINE. [Suspect]
     Active Substance: AZACITIDINE
     Route: 042
     Dates: start: 20180604, end: 20180608
  2. KONAKION MM [Concomitant]
     Active Substance: PHYTONADIONE
     Dates: start: 20180701
  3. FUNGIZONE [Concomitant]
     Active Substance: AMPHOTERICIN B
     Dates: start: 20180705
  4. MOTILIUM [DOMPERIDONE] [Concomitant]
     Dosage: AS NECESSARY
     Dates: start: 20180620
  5. PIPERACILLIN AND TAZOBACTAM [Suspect]
     Active Substance: PIPERACILLIN SODIUM\TAZOBACTAM SODIUM
     Dosage: 4.5 G, TID
     Route: 042
     Dates: start: 20180629, end: 20180704
  6. LUVIT D3 [Concomitant]
     Dates: start: 20180626, end: 20180628
  7. ASPIRIN CARDIO [Concomitant]
     Active Substance: ASPIRIN
  8. LASIX [Concomitant]
     Active Substance: FUROSEMIDE
  9. TORASEMIDE [Concomitant]
     Active Substance: TORSEMIDE
  10. METRONIDAZOLE. [Suspect]
     Active Substance: METRONIDAZOLE
     Dosage: DOSAGE UNKNOWN
     Dates: start: 20180610, end: 20180624
  11. ZOLPIDEM [Suspect]
     Active Substance: ZOLPIDEM\ZOLPIDEM TARTRATE
     Dosage: 10 MG, QD
     Route: 048
     Dates: start: 20180702, end: 20180703
  12. ZOLPIDEM [Suspect]
     Active Substance: ZOLPIDEM\ZOLPIDEM TARTRATE
     Dosage: 5 UNK
     Route: 048
     Dates: start: 20180703, end: 20180704
  13. CEFEPIME [Suspect]
     Active Substance: CEFEPIME HYDROCHLORIDE
     Dosage: DOSAGE UNKNOWN
     Dates: start: 20180610, end: 20180624
  14. METOLAZONE. [Concomitant]
     Active Substance: METOLAZONE
     Dates: start: 20180704
  15. CIRCADIN [Concomitant]
     Active Substance: MELATONIN
     Dates: start: 20180622, end: 20180702
  16. FLUCONAZOLE. [Suspect]
     Active Substance: FLUCONAZOLE
     Dosage: 400 MG, QD
     Route: 048
     Dates: start: 20180630, end: 20180701
  17. ECALTA [Suspect]
     Active Substance: ANIDULAFUNGIN
     Dosage: 100 UNK
     Route: 042
     Dates: start: 20180702, end: 20180705
  18. NEXIUM [Suspect]
     Active Substance: ESOMEPRAZOLE MAGNESIUM
     Dosage: 40 MG, QD
     Route: 048
     Dates: start: 20180621
  19. TEMESTA [LORAZEPAM] [Concomitant]
     Dates: start: 20180704
  20. COSAAR [Concomitant]
     Active Substance: LOSARTAN POTASSIUM
  21. BELOC ZOK [Concomitant]
     Active Substance: METOPROLOL SUCCINATE
  22. AMLODIPINE [Concomitant]
     Active Substance: AMLODIPINE BESYLATE
     Dosage: AS NECESSARY
  23. DAFALGAN [Concomitant]
     Active Substance: ACETAMINOPHEN
     Dosage: AS NECESSARY
  24. CLEXANE [Suspect]
     Active Substance: ENOXAPARIN SODIUM
     Dosage: 40 MG, QD
     Route: 058
     Dates: start: 20180627
  25. ECALTA [Suspect]
     Active Substance: ANIDULAFUNGIN
     Dosage: 200 MG
     Route: 042
     Dates: start: 20180701, end: 20180701
  26. DISTRANEURIN [Suspect]
     Active Substance: CLOMETHIAZOLE
     Dosage: 192 MG, QD
     Route: 048
     Dates: start: 20180620
  27. CRESTOR [Concomitant]
     Active Substance: ROSUVASTATIN CALCIUM
     Dates: end: 20180705

REACTIONS (2)
  - Hepatocellular injury [Not Recovered/Not Resolved]
  - Agranulocytosis [Recovered/Resolved]

NARRATIVE: CASE EVENT DATE: 201806
